APPROVED DRUG PRODUCT: MINOCYCLINE HYDROCHLORIDE
Active Ingredient: MINOCYCLINE HYDROCHLORIDE
Strength: EQ 55MG BASE
Dosage Form/Route: TABLET, EXTENDED RELEASE;ORAL
Application: A204453 | Product #008 | TE Code: AB
Applicant: ALKEM LABORATORIES LTD
Approved: Dec 19, 2019 | RLD: No | RS: No | Type: RX